FAERS Safety Report 13035822 (Version 1)
Quarter: 2016Q4

REPORT INFORMATION
  Report Type: Spontaneous
  Country: US (occurrence: US)
  Receive Date: 20161216
  Receipt Date: 20161216
  Transmission Date: 20170207
  Serious: No
  Sender: FDA-Public Use
  Company Number: US-PFIZER INC-2016572738

PATIENT
  Sex: Female

DRUGS (1)
  1. XELJANZ XR [Suspect]
     Active Substance: TOFACITINIB CITRATE
     Indication: RHEUMATOID ARTHRITIS
     Dosage: 11 MG, DAILY
     Dates: start: 201608

REACTIONS (9)
  - Sinusitis [Unknown]
  - Joint swelling [Unknown]
  - Burning sensation [Unknown]
  - Sleep disorder [Unknown]
  - Pain in extremity [Unknown]
  - Insomnia [Unknown]
  - Arthralgia [Unknown]
  - Increased tendency to bruise [Unknown]
  - Fatigue [Unknown]

NARRATIVE: CASE EVENT DATE: 2016
